FAERS Safety Report 5153387-9 (Version None)
Quarter: 2006Q4

REPORT INFORMATION
  Report Type: 
  Country: None (occurrence: None)
  Receive Date: 20061110
  Receipt Date: 20061106
  Transmission Date: 20070319
  Serious: Yes (Hospitalization, Other)
  Sender: FDA-Public Use
  Company Number: FRWYE120406MAY03

PATIENT
  Age: 45 Year
  Sex: Female

DRUGS (3)
  1. RAPAMUNE [Suspect]
     Indication: PROPHYLAXIS AGAINST TRANSPLANT REJECTION
     Dosage: 9 MG 1X PER 1 DAY
     Route: 048
     Dates: start: 20030414
  2. CELLCEPT [Concomitant]
  3. CORTANCYL (PREDNISONE) [Concomitant]

REACTIONS (3)
  - HAEMOLYTIC ANAEMIA [None]
  - RED BLOOD CELL SCHISTOCYTES PRESENT [None]
  - TRANSPLANT REJECTION [None]
